FAERS Safety Report 5534151-5 (Version None)
Quarter: 2007Q4

REPORT INFORMATION
  Report Type: 
  Country: None (occurrence: None)
  Receive Date: 20071130
  Receipt Date: 20071115
  Transmission Date: 20080405
  Serious: Yes (Other)
  Sender: FDA-Public Use
  Company Number: 8026872

PATIENT
  Age: 66 Year
  Sex: Female
  Weight: 50 kg

DRUGS (2)
  1. XYZALL /01530201/ [Suspect]
     Indication: HOUSE DUST ALLERGY
     Dosage: 1 DF /D PO
     Route: 048
     Dates: start: 20050101
  2. APROVEL [Suspect]
     Indication: HYPERTENSION
     Dosage: NI PO
     Route: 048
     Dates: start: 20070101

REACTIONS (4)
  - ABDOMINAL PAIN UPPER [None]
  - CHOLANGITIS SCLEROSING [None]
  - HEPATIC STEATOSIS [None]
  - HYPERTENSION [None]
